FAERS Safety Report 21739339 (Version 2)
Quarter: 2022Q4

REPORT INFORMATION
  Report Type: Spontaneous
  Country: US (occurrence: US)
  Receive Date: 20221216
  Receipt Date: 20221221
  Transmission Date: 20230113
  Serious: Yes (Life-Threatening, Hospitalization, Other)
  Sender: FDA-Public Use
  Company Number: US-drreddys-SPO/USA/22/0158100

PATIENT
  Age: 31 Day
  Sex: Male

DRUGS (3)
  1. DEXAMETHASONE SODIUM PHOSPHATE [Suspect]
     Active Substance: DEXAMETHASONE SODIUM PHOSPHATE
     Indication: Product used for unknown indication
     Dosage: DEXAMETHASONE 0.5 MG/KG/DOSE WAS ADMINISTERED FOLLOWED BY A DOSE OF 0.25 MG/KG 12 HOURS LATER
  2. DEXAMETHASONE SODIUM PHOSPHATE [Suspect]
     Active Substance: DEXAMETHASONE SODIUM PHOSPHATE
     Dosage: SMALL DOSE, 2 DOSES OF DEXAMETHASONE 0.05 MG/KG/DOSE WERE GIVEN 12 HOURS APART
  3. DEXAMETHASONE SODIUM PHOSPHATE [Suspect]
     Active Substance: DEXAMETHASONE SODIUM PHOSPHATE
     Dosage: DEXAMETHASONE 0.5 MG/KG/DOSE WAS ADMINISTERED FOLLOWED BY A DOSE OF 0.25 MG/KG 12 HOURS LATER

REACTIONS (4)
  - Cardiogenic shock [Recovered/Resolved]
  - Hypertrophic cardiomyopathy [Recovered/Resolved]
  - Oliguria [Recovering/Resolving]
  - Hypertension [Recovered/Resolved]
